FAERS Safety Report 7217454-8 (Version None)
Quarter: 2011Q1

REPORT INFORMATION
  Report Type: 
  Country: None (occurrence: None)
  Receive Date: 20110110
  Receipt Date: 20110105
  Transmission Date: 20110831
  Serious: Yes (Death, Other)
  Sender: FDA-Public Use
  Company Number: PHHY2010US77628

PATIENT
  Sex: Male
  Weight: 72 kg

DRUGS (15)
  1. EXJADE [Suspect]
     Indication: THALASSAEMIA
     Dosage: 750 MG, UNK
     Route: 048
     Dates: start: 20101103
  2. CALTRATE +D [Concomitant]
     Dosage: 1 UNK, TID
     Route: 048
  3. EXJADE [Suspect]
     Dosage: 750 MG, DAILY
     Route: 048
     Dates: start: 20101206, end: 20101206
  4. ZOFRAN [Concomitant]
     Dosage: 8 MG, PRN
     Route: 048
  5. LACTAID [Concomitant]
     Dosage: UNK
     Dates: start: 20101115, end: 20101122
  6. COUMADIN [Concomitant]
     Dosage: 11 MG, QHS
     Route: 048
  7. ASPIRIN [Concomitant]
     Dosage: 81 MG,DAILY
     Route: 048
  8. EXJADE [Suspect]
     Dosage: 500 MG,DAILY
     Dates: start: 20101129
  9. PROTONIX [Concomitant]
     Dosage: 40 MG, DAILY
     Route: 048
  10. ZINC [Concomitant]
     Dosage: 25 MG, DAILY
     Route: 048
  11. ADVAIR [Concomitant]
     Dosage: 250 MG, BID
  12. EXJADE [Suspect]
     Indication: IRON OVERLOAD
     Dosage: 250 MG,DAILY
     Route: 048
  13. FOLIC ACID [Concomitant]
     Dosage: 1 MG,DAILY
     Route: 048
  14. PENICILLIN VK (PCN VK) [Concomitant]
     Dosage: 250 MG, BID
     Route: 048
  15. ALBUTEROL [Concomitant]
     Dosage: 2 PUFFS, PRN

REACTIONS (4)
  - DEATH [None]
  - DIARRHOEA [None]
  - NAUSEA [None]
  - VOMITING [None]
